FAERS Safety Report 16333309 (Version 2)
Quarter: 2019Q2

REPORT INFORMATION
  Report Type: Report from Study
  Country: PK (occurrence: PK)
  Receive Date: 20190520
  Receipt Date: 20190527
  Transmission Date: 20190711
  Serious: Yes (Other)
  Sender: FDA-Public Use
  Company Number: PHHY2016PK134337

PATIENT
  Age: 36 Year
  Sex: Female
  Weight: 70 kg

DRUGS (5)
  1. TASIGNA [Suspect]
     Active Substance: NILOTINIB
     Dosage: 200 MG, BID (2+0+2)
     Route: 048
     Dates: start: 20190409
  2. TASIGNA [Suspect]
     Active Substance: NILOTINIB
     Dosage: 800 MG, BID
     Route: 065
  3. TASIGNA [Suspect]
     Active Substance: NILOTINIB
     Indication: CHRONIC MYELOID LEUKAEMIA
     Dosage: 200 MG, BID
     Route: 048
     Dates: start: 20160810
  4. TASIGNA [Suspect]
     Active Substance: NILOTINIB
     Dosage: 800 MG, BID
     Route: 048
     Dates: start: 20160811, end: 20160927
  5. TASIGNA [Suspect]
     Active Substance: NILOTINIB
     Dosage: 200 MG, BID
     Route: 048
     Dates: end: 20190408

REACTIONS (7)
  - Anaemia [Unknown]
  - Infection [Unknown]
  - Pancytopenia [Not Recovered/Not Resolved]
  - Leukopenia [Unknown]
  - Cytogenetic analysis abnormal [Not Recovered/Not Resolved]
  - Neutropenia [Unknown]
  - Thrombocytopenia [Unknown]

NARRATIVE: CASE EVENT DATE: 20160927
